FAERS Safety Report 8909337 (Version 2)
Quarter: 2013Q1

REPORT INFORMATION
  Report Type: Spontaneous
  Country: US (occurrence: None)
  Receive Date: 20121107
  Receipt Date: 20121221
  Transmission Date: 20140127
  Serious: Yes (Hospitalization, Other)
  Sender: FDA-Public Use
  Company Number: AUR-APL-2012-04708

PATIENT
  Age: 64 Year
  Sex: Female

DRUGS (1)
  1. NAPROXEN [Suspect]
     Indication: ARTHROPATHY

REACTIONS (15)
  - Urine output decreased [None]
  - Dysuria [None]
  - Vomiting [None]
  - Nausea [None]
  - Back pain [None]
  - Urinary tract infection [None]
  - Renal failure acute [None]
  - Eosinophilia [None]
  - Metabolic acidosis [None]
  - Hypokalaemia [None]
  - Haematuria [None]
  - Pyuria [None]
  - Proteinuria [None]
  - Tubulointerstitial nephritis [None]
  - Glycosuria [None]
